FAERS Safety Report 25547314 (Version 1)
Quarter: 2025Q3

REPORT INFORMATION
  Report Type: Spontaneous
  Country: CN (occurrence: CN)
  Receive Date: 20250714
  Receipt Date: 20250714
  Transmission Date: 20251020
  Serious: Yes (Other)
  Sender: BAXTER
  Company Number: None

PATIENT
  Age: 44 Year
  Sex: Female
  Weight: 60 kg

DRUGS (4)
  1. CYCLOPHOSPHAMIDE [Suspect]
     Active Substance: CYCLOPHOSPHAMIDE
     Indication: Breast cancer female
     Dosage: 1200 MG, EVERY 3 WK D1 + 0.9% SODIUM CHLORIDE INJECTION 100ML
     Route: 041
     Dates: start: 20250619, end: 20250619
  2. SODIUM CHLORIDE [Suspect]
     Active Substance: SODIUM CHLORIDE
     Dosage: 100 ML, EVERY 3 WK + CYCLOPHOSPHAMIDE FOR INJECTION 1200MG D1
     Route: 041
     Dates: start: 20250619, end: 20250619
  3. SODIUM CHLORIDE [Suspect]
     Active Substance: SODIUM CHLORIDE
     Dosage: 100 ML, EVERY 3 WK + DOCETAXEL INJECTION 120MG ST
     Route: 041
     Dates: start: 20250619, end: 20250619
  4. DOCETAXEL [Suspect]
     Active Substance: DOCETAXEL
     Indication: Breast cancer female
     Dosage: 120 MG, EVERY 3 WK ST + 0.9% SODIUM CHLORIDE INJECTION 250ML
     Route: 041
     Dates: start: 20250619, end: 20250619

REACTIONS (1)
  - Myelosuppression [Recovering/Resolving]

NARRATIVE: CASE EVENT DATE: 20250626
